FAERS Safety Report 6099091-4 (Version None)
Quarter: 2009Q1

REPORT INFORMATION
  Report Type: 
  Country: None (occurrence: None)
  Receive Date: 20090302
  Receipt Date: 20090226
  Transmission Date: 20090719
  Serious: Yes (Death, Congenital Anomaly)
  Sender: FDA-Public Use
  Company Number: US-B.I. PHARMACEUTICALS,INC./RIDGEFIELD-2008-BP-14374BP

PATIENT
  Age: 0 Year

DRUGS (2)
  1. VIRAMUNE [Suspect]
     Indication: HIV INFECTION
     Dosage: 200MG
     Route: 064
     Dates: start: 20041028, end: 20041101
  2. COMBIVIR [Suspect]
     Indication: HIV INFECTION
     Dosage: 2 TABLETS
     Route: 064

REACTIONS (2)
  - ANENCEPHALY [None]
  - PULSE ABSENT [None]
